FAERS Safety Report 13048942 (Version 1)
Quarter: 2016Q4

REPORT INFORMATION
  Report Type: Spontaneous
  Country: US (occurrence: US)
  Receive Date: 20161221
  Receipt Date: 20161221
  Transmission Date: 20170207
  Serious: Yes (Other)
  Sender: FDA-Public Use
  Company Number: US-ROCHE-1869105

PATIENT
  Sex: Male
  Weight: 77.18 kg

DRUGS (4)
  1. XOLAIR [Suspect]
     Active Substance: OMALIZUMAB
     Indication: ASTHMA
     Route: 065
  2. PREDNISONE. [Concomitant]
     Active Substance: PREDNISONE
     Route: 048
  3. ALBUTEROL INHALATION SOLUTION [Concomitant]
     Active Substance: ALBUTEROL
     Route: 065
  4. SYMBICORT [Concomitant]
     Active Substance: BUDESONIDE\FORMOTEROL FUMARATE DIHYDRATE
     Route: 065

REACTIONS (13)
  - Wheezing [Unknown]
  - Headache [Unknown]
  - Feeling of body temperature change [Unknown]
  - Malaise [Unknown]
  - Dyspepsia [Unknown]
  - Chest pain [Unknown]
  - Back pain [Unknown]
  - Vomiting [Unknown]
  - Paranasal sinus hypersecretion [Not Recovered/Not Resolved]
  - Muscle spasms [Unknown]
  - Gastrooesophageal reflux disease [Not Recovered/Not Resolved]
  - Candida infection [Unknown]
  - Gastrointestinal pain [Unknown]
